FAERS Safety Report 7015367-8 (Version None)
Quarter: 2010Q3

REPORT INFORMATION
  Report Type: 
  Country: None (occurrence: None)
  Receive Date: 20100927
  Receipt Date: 20100920
  Transmission Date: 20110219
  Serious: Yes (Hospitalization, Other)
  Sender: FDA-Public Use
  Company Number: IN-ROXANE LABORATORIES, INC.-2010-RO-01255RO

PATIENT
  Age: 53 Year
  Sex: Male

DRUGS (11)
  1. ZIDOVUDINE [Suspect]
     Indication: HIV INFECTION
  2. CYCLOPHOSPHAMIDE [Suspect]
     Indication: DIFFUSE LARGE B-CELL LYMPHOMA
  3. PREDNISONE [Suspect]
     Indication: DIFFUSE LARGE B-CELL LYMPHOMA
  4. HYDROXYDAUNORUBICIN [Suspect]
     Indication: DIFFUSE LARGE B-CELL LYMPHOMA
  5. ONCOVIN [Suspect]
     Indication: DIFFUSE LARGE B-CELL LYMPHOMA
  6. PREDNISOLONE [Suspect]
     Indication: DIFFUSE LARGE B-CELL LYMPHOMA
  7. LAMIVUDINE [Suspect]
     Indication: HIV INFECTION
  8. EFAVIRENZ [Suspect]
     Indication: HIV INFECTION
  9. COTRIMAXAZOLE [Suspect]
  10. ANTIFUNGAL [Suspect]
  11. TUBERCULOSIS PROPHYLAXIS [Suspect]
     Indication: ANTIBIOTIC PROPHYLAXIS

REACTIONS (3)
  - HYPERLIPIDAEMIA [None]
  - IMMUNE RECONSTITUTION SYNDROME [None]
  - TUBERCULOSIS [None]
